FAERS Safety Report 18329754 (Version 1)
Quarter: 2020Q3

REPORT INFORMATION
  Report Type: Spontaneous
  Country: AR (occurrence: AR)
  Receive Date: 20200930
  Receipt Date: 20200930
  Transmission Date: 20201103
  Serious: Yes (Death, Hospitalization)
  Sender: FDA-Public Use
  Company Number: AR-PFIZER INC-2020376620

PATIENT

DRUGS (2)
  1. AVELUMAB [Suspect]
     Active Substance: AVELUMAB
  2. AXITINIB [Suspect]
     Active Substance: AXITINIB

REACTIONS (1)
  - Pneumonia [Fatal]
